FAERS Safety Report 24068221 (Version 2)
Quarter: 2024Q3

REPORT INFORMATION
  Report Type: Spontaneous
  Country: FR (occurrence: FR)
  Receive Date: 20240710
  Receipt Date: 20240723
  Transmission Date: 20241016
  Serious: Yes (Hospitalization)
  Sender: SANOFI AVENTIS
  Company Number: FR-SA-SAC20240704000314

PATIENT
  Age: 25 Year
  Sex: Male

DRUGS (1)
  1. FABRAZYME [Suspect]
     Active Substance: AGALSIDASE BETA
     Indication: Fabry^s disease
     Dosage: UNK
     Route: 041
     Dates: start: 20240613

REACTIONS (2)
  - Troponin increased [Not Recovered/Not Resolved]
  - Electrocardiogram ST segment abnormal [Not Recovered/Not Resolved]

NARRATIVE: CASE EVENT DATE: 20240101
